FAERS Safety Report 12095347 (Version 1)
Quarter: 2016Q1

REPORT INFORMATION
  Report Type: Spontaneous
  Country: RO (occurrence: RO)
  Receive Date: 20160219
  Receipt Date: 20160219
  Transmission Date: 20160526
  Serious: Yes (Death, Hospitalization, Other)
  Sender: FDA-Public Use
  Company Number: RO-GLAXOSMITHKLINE-RO2016GSK023734

PATIENT
  Age: 71 Year
  Sex: Female

DRUGS (6)
  1. LAMIVUDINE. [Suspect]
     Active Substance: LAMIVUDINE
     Indication: HEPATITIS B
     Dosage: UNK
     Route: 065
  2. FLUDARABINE [Suspect]
     Active Substance: FLUDARABINE PHOSPHATE
     Dosage: UNK UNK, CYC
     Route: 065
     Dates: start: 2007
  3. FLUDARABINE [Suspect]
     Active Substance: FLUDARABINE PHOSPHATE
     Indication: CHRONIC LYMPHOCYTIC LEUKAEMIA
     Dosage: UNK UNK, CYC (4 CYCLES)
     Route: 065
     Dates: start: 200604
  4. CYCLOPHOSPHAMIDE. [Suspect]
     Active Substance: CYCLOPHOSPHAMIDE
     Indication: CHRONIC LYMPHOCYTIC LEUKAEMIA
     Dosage: UNK UNK, CYC (4 CYCLES)
     Route: 065
     Dates: start: 200604
  5. CYCLOPHOSPHAMIDE. [Suspect]
     Active Substance: CYCLOPHOSPHAMIDE
     Dosage: UNK UNK, CYC
     Route: 065
     Dates: start: 2007
  6. ALEMTUZUMAB [Suspect]
     Active Substance: ALEMTUZUMAB
     Indication: CHRONIC LYMPHOCYTIC LEUKAEMIA
     Dosage: UNK, CYC
     Route: 065
     Dates: start: 2012

REACTIONS (29)
  - Hepatitis B [Unknown]
  - Purpura [Unknown]
  - Contusion [Unknown]
  - Atrial fibrillation [Unknown]
  - Thrombocytopenia [Unknown]
  - Aspiration bone marrow abnormal [Unknown]
  - Pneumonia [Unknown]
  - Pneumocystis jirovecii pneumonia [Unknown]
  - Malaise [Unknown]
  - Cough [Unknown]
  - Dyspnoea [Unknown]
  - Petechiae [Unknown]
  - Hepatosplenomegaly [Unknown]
  - Multiple organ dysfunction syndrome [Fatal]
  - Viraemia [Unknown]
  - Weight decreased [Unknown]
  - Pancytopenia [Unknown]
  - Acute lymphocytic leukaemia [Unknown]
  - Pyrexia [Unknown]
  - Pallor [Unknown]
  - Lymphadenopathy [Unknown]
  - Anaemia [Unknown]
  - Neutropenia [Unknown]
  - Immunosuppression [Unknown]
  - Cachexia [Unknown]
  - Sepsis [Fatal]
  - Decreased appetite [Unknown]
  - Rales [Unknown]
  - Leukopenia [Unknown]

NARRATIVE: CASE EVENT DATE: 2013
